FAERS Safety Report 7157797-X (Version None)
Quarter: 2010Q4

REPORT INFORMATION
  Report Type: 
  Country: None (occurrence: None)
  Receive Date: 20101116
  Receipt Date: 20101101
  Transmission Date: 20110411
  Serious: Yes (Hospitalization)
  Sender: FDA-Public Use
  Company Number: 20101101CINRY1674

PATIENT
  Age: 10 Year
  Sex: Female

DRUGS (4)
  1. CINRYZE [Suspect]
     Indication: ANGIOEDEMA
     Dosage: (1000 UNIT, 2 IN 1 WK), INTRAVENOUS; 500 UNIT, 2 IN 1 WK), INTRAVENOUS
     Route: 042
     Dates: start: 20100621, end: 20101101
  2. CINRYZE [Suspect]
     Indication: PROPHYLAXIS
     Dosage: (1000 UNIT, 2 IN 1 WK), INTRAVENOUS; 500 UNIT, 2 IN 1 WK), INTRAVENOUS
     Route: 042
     Dates: start: 20100621, end: 20101101
  3. CINRYZE [Suspect]
     Indication: ANGIOEDEMA
     Dosage: (1000 UNIT, 2 IN 1 WK), INTRAVENOUS; 500 UNIT, 2 IN 1 WK), INTRAVENOUS
     Route: 042
     Dates: start: 20101102
  4. CINRYZE [Suspect]
     Indication: PROPHYLAXIS
     Dosage: (1000 UNIT, 2 IN 1 WK), INTRAVENOUS; 500 UNIT, 2 IN 1 WK), INTRAVENOUS
     Route: 042
     Dates: start: 20101102

REACTIONS (1)
  - TRANSIENT ISCHAEMIC ATTACK [None]
